FAERS Safety Report 8791092 (Version 1)
Quarter: 2012Q4

REPORT INFORMATION
  Report Type: Spontaneous
  Country: DE (occurrence: None)
  Receive Date: 20120911
  Receipt Date: 20120911
  Transmission Date: 20130627
  Serious: Yes (Hospitalization)
  Sender: FDA-Public Use
  Company Number: USA/GER/12/0025680

PATIENT
  Age: 51 Year
  Sex: Female

DRUGS (3)
  1. OLANZAPINE [Suspect]
  2. LORAZEPAM (LORAZEPAM) [Concomitant]
  3. L-THYROXINE (LEVOTHYROXINE) [Concomitant]

REACTIONS (3)
  - General physical health deterioration [None]
  - Hypothermia [None]
  - Weight decreased [None]
